FAERS Safety Report 5758366-6 (Version None)
Quarter: 2008Q2

REPORT INFORMATION
  Report Type: 
  Country: None (occurrence: None)
  Receive Date: 20080602
  Receipt Date: 20080602
  Transmission Date: 20081010
  Serious: Yes (Other)
  Sender: FDA-Public Use
  Company Number: None

PATIENT
  Age: 57 Year
  Sex: Female
  Weight: 153 kg

DRUGS (1)
  1. ACTONEL [Suspect]
     Indication: BONE DENSITY DECREASED
     Dosage: 75MG  2 DAYS A MONTH
     Dates: start: 20080201, end: 20080401

REACTIONS (9)
  - ARTHRALGIA [None]
  - EYE SWELLING [None]
  - IMPAIRED WORK ABILITY [None]
  - INFLUENZA [None]
  - OCULAR HYPERAEMIA [None]
  - OEDEMA PERIPHERAL [None]
  - PAIN IN EXTREMITY [None]
  - SWELLING FACE [None]
  - TOOTH DISORDER [None]
